FAERS Safety Report 15415972 (Version 1)
Quarter: 2018Q3

REPORT INFORMATION
  Report Type: Spontaneous
  Country: US (occurrence: US)
  Receive Date: 20180923
  Receipt Date: 20180923
  Transmission Date: 20181010
  Serious: No
  Sender: FDA-Public Use
  Company Number: US-JNJFOC-20180901688

PATIENT
  Age: 6 Month
  Sex: Male

DRUGS (2)
  1. MOTRIN [Suspect]
     Active Substance: IBUPROFEN
     Route: 065
  2. MOTRIN [Suspect]
     Active Substance: IBUPROFEN
     Indication: TEETHING
     Route: 065

REACTIONS (5)
  - Speech disorder [Unknown]
  - Energy increased [Unknown]
  - Inappropriate affect [Unknown]
  - Poor quality sleep [Unknown]
  - Hypervigilance [Unknown]
